FAERS Safety Report 9440265 (Version 1)
Quarter: 2013Q3

REPORT INFORMATION
  Report Type: Spontaneous
  Country: CA (occurrence: CA)
  Receive Date: 20130805
  Receipt Date: 20130805
  Transmission Date: 20140515
  Serious: Yes (Life-Threatening, Hospitalization)
  Sender: FDA-Public Use
  Company Number: PHHY2013CA083073

PATIENT
  Age: 20 Month
  Sex: Male
  Weight: 11.34 kg

DRUGS (10)
  1. SIMULECT [Suspect]
     Dosage: 10 MG, ONCE
     Route: 042
  2. ACETAMINOPHEN [Concomitant]
  3. CEFTAZIDIME [Concomitant]
     Route: 030
  4. FENTANYL [Concomitant]
     Route: 062
  5. HEPARIN [Concomitant]
  6. METHYLPREDNISOLONE [Concomitant]
  7. MIDAZOLAM [Concomitant]
     Route: 030
  8. NIMBEX//CISATRACURIUM BESILATE [Concomitant]
  9. RANITIDINE [Concomitant]
  10. VANCOMYCIN [Concomitant]

REACTIONS (1)
  - Acute respiratory distress syndrome [Not Recovered/Not Resolved]
